FAERS Safety Report 8146518-X (Version None)
Quarter: 2012Q1

REPORT INFORMATION
  Report Type: 
  Country: None (occurrence: None)
  Receive Date: 20120217
  Receipt Date: 20111107
  Transmission Date: 20120608
  Serious: No
  Sender: FDA-Public Use
  Company Number: US-ABBOTT-11P-163-0871541-00

PATIENT
  Sex: Male
  Weight: 102.15 kg

DRUGS (3)
  1. LISINOPRIL [Concomitant]
     Indication: PRODUCT USED FOR UNKNOWN INDICATION
     Route: 048
  2. ASPIRIN [Concomitant]
     Indication: PRODUCT USED FOR UNKNOWN INDICATION
     Route: 048
  3. SIMCOR [Suspect]
     Indication: FAMILIAL RISK FACTOR
     Dosage: 1 DOSE AT BEDTIME
     Route: 048
     Dates: start: 20111101

REACTIONS (2)
  - FLUSHING [None]
  - PRURITUS [None]
